FAERS Safety Report 14045072 (Version 1)
Quarter: 2017Q4

REPORT INFORMATION
  Report Type: Spontaneous
  Country: US (occurrence: US)
  Receive Date: 20171005
  Receipt Date: 20171005
  Transmission Date: 20180321
  Serious: Yes (Other)
  Sender: FDA-Public Use
  Company Number: None

PATIENT
  Age: 64 Year
  Sex: Male
  Weight: 69.75 kg

DRUGS (6)
  1. ATROVASTATIN [Concomitant]
     Active Substance: ATORVASTATIN CALCIUM
  2. CALCIUM [Concomitant]
     Active Substance: CALCIUM
  3. PROLIA [Suspect]
     Active Substance: DENOSUMAB
     Indication: BONE LOSS
     Dosage: ?          OTHER FREQUENCY:1 INJECTION / 6 MO;?
     Route: 030
  4. VITAMIN D [Concomitant]
     Active Substance: CHOLECALCIFEROL
  5. FINASTERIDE. [Concomitant]
     Active Substance: FINASTERIDE
  6. FAMOTIDINE. [Concomitant]
     Active Substance: FAMOTIDINE

REACTIONS (1)
  - Cataract [None]

NARRATIVE: CASE EVENT DATE: 20170828
